FAERS Safety Report 21930194 (Version 1)
Quarter: 2023Q1

REPORT INFORMATION
  Report Type: Report from Study
  Country: MX (occurrence: MX)
  Receive Date: 20230131
  Receipt Date: 20230131
  Transmission Date: 20230417
  Serious: Yes (Other)
  Sender: FDA-Public Use
  Company Number: MX-002147023-NVSC2023MX020405

PATIENT
  Age: 57 Year
  Sex: Female
  Weight: 50 kg

DRUGS (1)
  1. ENTRESTO [Suspect]
     Active Substance: SACUBITRIL\VALSARTAN
     Indication: Cardiac failure
     Dosage: 0.25 DOSAGE FORM, BID
     Route: 048
     Dates: start: 20211122

REACTIONS (3)
  - Epilepsy [Unknown]
  - Prescribed underdose [Unknown]
  - Wrong technique in product usage process [Unknown]

NARRATIVE: CASE EVENT DATE: 20211122
